FAERS Safety Report 6980513-9 (Version None)
Quarter: 2010Q3

REPORT INFORMATION
  Report Type: 
  Country: None (occurrence: None)
  Receive Date: 20100914
  Receipt Date: 20100902
  Transmission Date: 20110219
  Serious: Yes (Other)
  Sender: FDA-Public Use
  Company Number: PHHY2010BE37594

PATIENT
  Age: 48 Year
  Sex: Male

DRUGS (5)
  1. DESFERAL [Suspect]
     Indication: HAEMOSIDEROSIS
     Route: 058
  2. GLUCOSAMINE [Concomitant]
  3. NSAID'S [Concomitant]
  4. DEANXIT [Concomitant]
  5. INDERAL [Concomitant]
     Dosage: 80

REACTIONS (7)
  - BEDRIDDEN [None]
  - GENERAL PHYSICAL HEALTH DETERIORATION [None]
  - HAEMOSIDEROSIS [None]
  - HEPATIC CIRRHOSIS [None]
  - OSTEOPOROSIS [None]
  - SEDATION [None]
  - SPINAL FRACTURE [None]
